FAERS Safety Report 12818542 (Version 1)
Quarter: 2016Q4

REPORT INFORMATION
  Report Type: Spontaneous
  Country: DE (occurrence: DE)
  Receive Date: 20161006
  Receipt Date: 20161006
  Transmission Date: 20170207
  Serious: Yes (Hospitalization, Other)
  Sender: FDA-Public Use
  Company Number: DE-APOTEX-2016AP012466

PATIENT
  Age: 68 Year
  Sex: Male

DRUGS (6)
  1. CLOPIDOGREL APOTEX [Suspect]
     Active Substance: CLOPIDOGREL BISULFATE
     Indication: ATRIAL FIBRILLATION
  2. PHENPROCOUMON [Suspect]
     Active Substance: PHENPROCOUMON
     Indication: ATRIAL FIBRILLATION
     Dosage: UNK
     Route: 065
  3. ASPIRIN                            /00002701/ [Suspect]
     Active Substance: ASPIRIN
     Indication: HEART VALVE REPLACEMENT
     Dosage: UNK
     Route: 065
  4. CLOPIDOGREL APOTEX [Suspect]
     Active Substance: CLOPIDOGREL BISULFATE
     Indication: HEART VALVE REPLACEMENT
     Dosage: UNK
     Route: 065
  5. ASPIRIN                            /00002701/ [Suspect]
     Active Substance: ASPIRIN
     Indication: ATRIAL FIBRILLATION
  6. PHENPROCOUMON [Suspect]
     Active Substance: PHENPROCOUMON
     Indication: HEART VALVE REPLACEMENT

REACTIONS (3)
  - Ocular retrobulbar haemorrhage [Unknown]
  - International normalised ratio increased [Unknown]
  - Blindness unilateral [Not Recovered/Not Resolved]
